FAERS Safety Report 7735177-3 (Version None)
Quarter: 2011Q3

REPORT INFORMATION
  Report Type: 
  Country: None (occurrence: None)
  Receive Date: 20110817
  Receipt Date: 20110125
  Transmission Date: 20111222
  Serious: Yes (Other)
  Sender: FDA-Public Use
  Company Number: 20119954

PATIENT
  Sex: Male

DRUGS (1)
  1. LIORESAL [Suspect]
     Indication: MUSCLE SPASTICITY
     Dosage: 96 MCG, DAILY, INTRATHECAL
     Route: 037

REACTIONS (2)
  - DRUG EFFECT INCREASED [None]
  - ASTHENIA [None]
